FAERS Safety Report 5877390-6 (Version None)
Quarter: 2008Q3

REPORT INFORMATION
  Report Type: 
  Country: None (occurrence: None)
  Receive Date: 20080908
  Receipt Date: 20080828
  Transmission Date: 20090109
  Serious: Yes (Other)
  Sender: FDA-Public Use
  Company Number: WAES 0809USA00098

PATIENT
  Age: 84 Year
  Sex: Female

DRUGS (7)
  1. PEPCID [Suspect]
     Dosage: PO
     Route: 048
  2. DISOTHIAZIDE (HYDROCHLOROTHIAZIDE) [Suspect]
  3. BROTIZOLAM [Suspect]
  4. ATENOLOL [Concomitant]
  5. CAPTOPRIL [Concomitant]
  6. MAPROTILINE HCL [Concomitant]
  7. RALOXIFENE HYDROCHLORIDE [Concomitant]

REACTIONS (1)
  - PEMPHIGUS [None]
